FAERS Safety Report 15139730 (Version 2)
Quarter: 2018Q3

REPORT INFORMATION
  Report Type: Spontaneous
  Country: DE (occurrence: DE)
  Receive Date: 20180713
  Receipt Date: 20180731
  Transmission Date: 20181010
  Serious: Yes (Death, Other)
  Sender: FDA-Public Use
  Company Number: DE-AUROBINDO-AUR-APL-2013-04560

PATIENT
  Age: 40 Year
  Sex: Female
  Weight: 47 kg

DRUGS (32)
  1. LAMOTRIGINE AUROBINDO TABLETS 100MG [Suspect]
     Active Substance: LAMOTRIGINE
     Dosage: 400 MILLIGRAM, ONCE A DAY
     Route: 065
  2. CITALOPRAM [Suspect]
     Active Substance: CITALOPRAM HYDROBROMIDE
     Indication: PRODUCT USED FOR UNKNOWN INDICATION
     Dosage: UNK
     Route: 065
  3. VIMPAT [Suspect]
     Active Substance: LACOSAMIDE
     Dosage: 2 UNK, ONCE A DAY, 100 MG IN AM (1 TAB) AND 150 MG IN PM (1 1/2 TAB)
     Route: 065
  4. CLOBAZAM [Suspect]
     Active Substance: CLOBAZAM
     Indication: PRODUCT USED FOR UNKNOWN INDICATION
     Dosage: UNK
     Route: 048
  5. VALDOXAN [Suspect]
     Active Substance: AGOMELATINE
     Dosage: DAILY DOSE: 50 MG MILLIGRAM(S) EVERY DAY  UNK ()
     Route: 065
  6. LORAZEPAM. [Suspect]
     Active Substance: LORAZEPAM
     Dosage: 1 UNK, 1 AS NECESSARY, AS NEEDED (PRN)
     Route: 065
  7. KEPPRA [Suspect]
     Active Substance: LEVETIRACETAM
     Dosage: 2 UNK, ONCE A DAY, 1000 MG, 1 AND HALF IN THE MORNING AND EVENING
     Route: 065
  8. LAMOTRIGINE AUROBINDO TABLETS 100MG [Suspect]
     Active Substance: LAMOTRIGINE
     Dosage: UNK UNK,UNK,,1 DOSAGE FORM IN MORNING AND 2 IN EVENING
     Route: 065
  9. LAMOTRIGINE AUROBINDO TABLETS 100MG [Suspect]
     Active Substance: LAMOTRIGINE
     Dosage: 2 UNK, ONCE A DAY, WEEK 4: 100 MG?2 IN THE MORNING AND 2 IN THE EVENING
     Route: 065
  10. VIMPAT [Suspect]
     Active Substance: LACOSAMIDE
     Dosage: 2 UNK, ONCE A DAY, 100 MG?168 TABLETS, IN THE MORNING AND 1 AND A HALF IN THE EVENING
     Route: 065
  11. CIPRAMIL                           /00582602/ [Suspect]
     Active Substance: CITALOPRAM HYDROBROMIDE
     Indication: PRODUCT USED FOR UNKNOWN INDICATION
     Dosage: UNK
     Route: 065
  12. LAMOTRIGINE AUROBINDO TABLETS 100MG [Suspect]
     Active Substance: LAMOTRIGINE
     Dosage: UNK UNK,UNK,,1.5 DOSAGE FORM IN MORNING AND 2 IN EVENING
     Route: 065
  13. LAMOTRIGINE AUROBINDO TABLETS 100MG [Suspect]
     Active Substance: LAMOTRIGINE
     Dosage: 2 UNK, ONCE A DAY, WEEK 2: 100 MG?1 IN THE MORNING AND 2 IN THE EVENING
     Route: 065
  14. LAMOTRIGINE AUROBINDO TABLETS 100MG [Suspect]
     Active Substance: LAMOTRIGINE
     Dosage: UNK UNK,UNK,,2 DOSAGE FORM IN MORNING AND 2 IN EVENING
     Route: 065
  15. KEPPRA [Suspect]
     Active Substance: LEVETIRACETAM
     Indication: EPILEPSY
     Dosage: UNK UNK,UNK,,1.5 DOSAGE FORM MORNING AND 1.5 EVENING
     Route: 065
  16. DIAMOX                             /00016901/ [Suspect]
     Active Substance: ACETAZOLAMIDE
     Indication: PRODUCT USED FOR UNKNOWN INDICATION
     Dosage: UNK UNK,UNK,,1 DOSAGE FORM MORNING AND 1 IN EVENING
     Route: 065
  17. CIPRAMIL                           /00582602/ [Suspect]
     Active Substance: CITALOPRAM HYDROBROMIDE
     Indication: SUICIDE ATTEMPT
  18. LAMOTRIGINE AUROBINDO TABLETS 100MG [Suspect]
     Active Substance: LAMOTRIGINE
     Dosage: 2 UNK, ONCE A DAY, WEEK 3: 100 MG?1 AND HALF IN THE MORNING AND 2 IN THE EVENING
     Route: 065
  19. KEPPRA [Suspect]
     Active Substance: LEVETIRACETAM
     Indication: SUICIDE ATTEMPT
     Dosage: 1000 MG, ONE AND HALF A TABLET IN THE MORNING, ONE AND HALF A TABLET IN THE EVENING
     Route: 065
  20. CLONAZEPAM. [Suspect]
     Active Substance: CLONAZEPAM
     Indication: PRODUCT USED FOR UNKNOWN INDICATION
     Dosage: UNK
     Route: 065
  21. VIMPAT [Suspect]
     Active Substance: LACOSAMIDE
     Dosage: 100 MILLIGRAM
     Route: 065
  22. VALDOXAN [Suspect]
     Active Substance: AGOMELATINE
     Indication: PRODUCT USED FOR UNKNOWN INDICATION
     Dosage: UNK UNK,UNK,,2 DOSAGE FORMS IN EVENING
     Route: 065
  23. VALDOXAN [Suspect]
     Active Substance: AGOMELATINE
     Dosage: 98 TABLETS; 25 MG
     Route: 065
  24. LORAZEPAM. [Suspect]
     Active Substance: LORAZEPAM
     Indication: PRODUCT USED FOR UNKNOWN INDICATION
     Dosage: UNK UNK,UNK,,AS NEEDED
     Route: 065
  25. LAMOTRIGINE AUROBINDO TABLETS 100MG [Suspect]
     Active Substance: LAMOTRIGINE
     Indication: PRODUCT USED FOR UNKNOWN INDICATION
     Dosage: UNK UNK,UNK,,1 DOSAGE FORM IN MORNING AND 1.5 IN EVENING
     Route: 065
  26. VIMPAT [Suspect]
     Active Substance: LACOSAMIDE
     Indication: PRODUCT USED FOR UNKNOWN INDICATION
     Dosage: UNK UNK,UNK,,MORNING 1 ANF EVENING 1.5 DOSAGE FORM
     Route: 065
  27. DIAMOX                             /00016901/ [Suspect]
     Active Substance: ACETAZOLAMIDE
     Dosage: DAILY DOSE: 2 DF DOSAGE FORM EVERY DAY
     Route: 065
  28. VALDOXAN [Suspect]
     Active Substance: AGOMELATINE
     Dosage: 25 MILLIGRAM
     Route: 065
  29. LAMOTRIGINE AUROBINDO TABLETS 100MG [Suspect]
     Active Substance: LAMOTRIGINE
     Dosage: 2 UNK, ONCE A DAY, WEEK 1: 100 MG; 1 IN THE MORNING AND 1 AND HALF IN THE EVENING
     Route: 065
  30. KEPPRA [Suspect]
     Active Substance: LEVETIRACETAM
     Dosage: 3000 MILLIGRAM, ONCE A DAY
     Route: 065
  31. CLOBAZAM [Suspect]
     Active Substance: CLOBAZAM
     Indication: SUICIDE ATTEMPT
  32. DIAMOX                             /00016901/ [Suspect]
     Active Substance: ACETAZOLAMIDE
     Dosage: UNK, DAILY DOSE: 1 DF DOSAGE FORM EVERY DAY UNK

REACTIONS (7)
  - Completed suicide [Fatal]
  - Pulmonary oedema [None]
  - Cardiotoxicity [None]
  - Toxicity to various agents [Fatal]
  - Overdose [Fatal]
  - Poisoning [Fatal]
  - Death [Fatal]
